FAERS Safety Report 6361353-0 (Version None)
Quarter: 2009Q3

REPORT INFORMATION
  Report Type: 
  Country: None (occurrence: None)
  Receive Date: 20090918
  Receipt Date: 20090910
  Transmission Date: 20100115
  Serious: Yes (Death)
  Sender: FDA-Public Use
  Company Number: B0592557A

PATIENT
  Age: 41 Year
  Sex: Male

DRUGS (5)
  1. PROCYCLIDINE HYDROCHLORIDE 2MG TAB [Suspect]
     Route: 065
  2. CLOZARIL [Suspect]
     Indication: SCHIZOPHRENIA
     Route: 048
     Dates: start: 20040112
  3. ZOPICLONE [Suspect]
     Route: 065
  4. CHLORPROMAZINE [Suspect]
     Route: 048
  5. CLONAZEPAM [Suspect]
     Route: 048
     Dates: start: 20031230

REACTIONS (9)
  - ARTERITIS [None]
  - CARDIO-RESPIRATORY ARREST [None]
  - DIARRHOEA [None]
  - DRUG INTERACTION [None]
  - DRUG LEVEL INCREASED [None]
  - HYPOVOLAEMIA [None]
  - ORTHOSTATIC HYPOTENSION [None]
  - RENAL IMPAIRMENT [None]
  - VIRAL MYOCARDITIS [None]
